FAERS Safety Report 5186574-4 (Version None)
Quarter: 2006Q4

REPORT INFORMATION
  Report Type: 
  Country: None (occurrence: None)
  Receive Date: 20061213
  Receipt Date: 20061127
  Transmission Date: 20070319
  Serious: Yes (Other)
  Sender: FDA-Public Use
  Company Number: 8020479

PATIENT
  Age: 57 Year
  Sex: Female

DRUGS (1)
  1. LEVETIRACETAM [Suspect]
     Indication: GRAND MAL CONVULSION

REACTIONS (3)
  - BLEEDING TIME PROLONGED [None]
  - ECCHYMOSIS [None]
  - THROMBOCYTOPENIA [None]
